FAERS Safety Report 13565090 (Version 1)
Quarter: 2017Q2

REPORT INFORMATION
  Report Type: Spontaneous
  Country: US (occurrence: US)
  Receive Date: 20170519
  Receipt Date: 20170519
  Transmission Date: 20170830
  Serious: No
  Sender: FDA-Public Use
  Company Number: US-BAUSCH-BL-2016-012115

PATIENT
  Age: 76 Year
  Sex: Male

DRUGS (2)
  1. IPRATROPIUM BROMIDE NASAL SOLUTION 0.06% [Suspect]
     Active Substance: IPRATROPIUM BROMIDE
     Indication: UPPER-AIRWAY COUGH SYNDROME
     Route: 045
     Dates: start: 20160519
  2. OFEV [Concomitant]
     Active Substance: NINTEDANIB
     Indication: PULMONARY FIBROSIS
     Dates: start: 2015

REACTIONS (3)
  - Asthenia [Not Recovered/Not Resolved]
  - Feeling abnormal [Not Recovered/Not Resolved]
  - Dizziness [Not Recovered/Not Resolved]

NARRATIVE: CASE EVENT DATE: 201605
